FAERS Safety Report 9193799 (Version 2)
Quarter: 2013Q2

REPORT INFORMATION
  Report Type: Spontaneous
  Country: DE (occurrence: DE)
  Receive Date: 20130327
  Receipt Date: 20130410
  Transmission Date: 20140414
  Serious: Yes (Death, Life-Threatening, Hospitalization, Other)
  Sender: FDA-Public Use
  Company Number: DE-JNJFOC-20130310154

PATIENT
  Age: 81 Year
  Sex: 0

DRUGS (11)
  1. XARELTO [Suspect]
     Indication: CEREBROVASCULAR ACCIDENT PROPHYLAXIS
     Route: 048
     Dates: start: 20121105, end: 20121202
  2. XARELTO [Suspect]
     Indication: ATRIAL FIBRILLATION
     Route: 048
     Dates: start: 20121105, end: 20121202
  3. SIMVASTATIN [Concomitant]
     Route: 065
  4. THYROXIN [Concomitant]
     Route: 065
  5. ACTRAPHANE [Concomitant]
     Route: 065
  6. DIGITOXIN [Concomitant]
     Route: 065
  7. METOPROLOL [Concomitant]
     Route: 065
  8. AMLODIPINE [Concomitant]
     Route: 065
  9. HYDROCHLOROTHIAZIDE [Concomitant]
     Route: 065
  10. CANDESARTAN [Concomitant]
     Route: 065
  11. TORASEMIDE [Concomitant]
     Route: 065

REACTIONS (2)
  - Pulmonary embolism [Fatal]
  - Gastrointestinal haemorrhage [Not Recovered/Not Resolved]
